FAERS Safety Report 7948200 (Version 4)
Quarter: 2013Q1

REPORT INFORMATION
  Report Type: Spontaneous
  Country: US (occurrence: US)
  Receive Date: 20110517
  Receipt Date: 20130115
  Transmission Date: 20140127
  Serious: Yes (Hospitalization, Other)
  Sender: FDA-Public Use
  Company Number: US-AMGEN-USASP2011023643

PATIENT
  Age: 25 Year
  Sex: Female
  Weight: 51.7 kg

DRUGS (13)
  1. ENBREL [Suspect]
     Indication: PSORIASIS
     Dosage: 50 MG, QWK
     Dates: start: 20110105, end: 201103
  2. ENBREL [Suspect]
     Indication: PSORIATIC ARTHROPATHY
     Dosage: 50 MG, 2 TIMES/WK
     Dates: start: 20100914, end: 201012
  3. CITALOPRAM [Concomitant]
     Dosage: 20 MG, QD
  4. IBUPROFEN [Concomitant]
     Dosage: UNK UNK, PRN
  5. DEMEROL [Concomitant]
     Dosage: UNK UNK, QWK
  6. COLACE [Concomitant]
     Dosage: 100 MG, BID
     Route: 048
     Dates: start: 20110411, end: 20110511
  7. TYLENOL /00020001/ [Concomitant]
     Dosage: 650 MG, Q4H
     Route: 048
     Dates: start: 20110406, end: 20110506
  8. DULCOLAX                           /00064401/ [Concomitant]
     Dosage: 10 MG, Q4H
     Route: 054
     Dates: start: 20110411, end: 20110511
  9. VICODIN [Concomitant]
     Dosage: 500 MG, Q6H
     Route: 048
     Dates: start: 20110406, end: 20110506
  10. MAGAL [Concomitant]
     Dosage: 20 ML, QD
     Route: 048
     Dates: start: 20110406, end: 20110506
  11. ZOFRAN                             /00955301/ [Concomitant]
     Dosage: 4 MG, Q6H
     Route: 042
     Dates: start: 20110408, end: 20110508
  12. OXYCODONE [Concomitant]
     Dosage: 10 MG, Q4H
     Route: 048
     Dates: start: 20110407, end: 20110417
  13. MIRALAX [Concomitant]
     Dosage: UNK UNK, QD
     Route: 048
     Dates: start: 20110406, end: 20110506

REACTIONS (18)
  - Guillain-Barre syndrome [Recovering/Resolving]
  - Polyneuropathy [Unknown]
  - Visual impairment [Unknown]
  - Upper respiratory tract infection [Unknown]
  - Influenza [Unknown]
  - Headache [Unknown]
  - Arthralgia [Unknown]
  - Joint swelling [Unknown]
  - Sleep disorder [Unknown]
  - Urinary incontinence [Unknown]
  - Blood glucose increased [Unknown]
  - Procedural headache [Recovered/Resolved]
  - Musculoskeletal stiffness [Unknown]
  - Pain in extremity [Recovering/Resolving]
  - Anaesthesia [Unknown]
  - Fatigue [Not Recovered/Not Resolved]
  - Paraesthesia [Unknown]
  - Psoriasis [Unknown]
